FAERS Safety Report 9958333 (Version 1)
Quarter: 2014Q1

REPORT INFORMATION
  Report Type: Spontaneous
  Country: US (occurrence: US)
  Receive Date: 20140304
  Receipt Date: 20140304
  Transmission Date: 20141002
  Serious: No
  Sender: FDA-Public Use
  Company Number: US-ABBVIE-13P-163-1095206-00

PATIENT
  Age: 44 Year
  Sex: Male
  Weight: 97.61 kg

DRUGS (6)
  1. HUMIRA [Suspect]
     Indication: COLITIS ULCERATIVE
     Dates: start: 20130509, end: 20130509
  2. HUMIRA [Suspect]
     Dates: start: 20130523, end: 20130523
  3. LIALDA [Concomitant]
     Indication: COLITIS ULCERATIVE
  4. AZATHIOPRINE [Concomitant]
     Indication: COLITIS ULCERATIVE
  5. FOLIC ACID [Concomitant]
     Indication: COLITIS ULCERATIVE
  6. NEXIUM [Concomitant]
     Indication: GASTROOESOPHAGEAL REFLUX DISEASE

REACTIONS (4)
  - Injection site erythema [Not Recovered/Not Resolved]
  - Injection site pruritus [Not Recovered/Not Resolved]
  - Injection site swelling [Not Recovered/Not Resolved]
  - Injection site pain [Not Recovered/Not Resolved]
